FAERS Safety Report 9010389 (Version 1)
Quarter: 2013Q1

REPORT INFORMATION
  Report Type: Spontaneous
  Country: US (occurrence: US)
  Receive Date: 20130111
  Receipt Date: 20130111
  Transmission Date: 20140127
  Serious: Yes (Hospitalization)
  Sender: FDA-Public Use
  Company Number: US-009507513-1301USA001706

PATIENT
  Age: 81 Year
  Sex: Female

DRUGS (4)
  1. SINGULAIR [Suspect]
     Indication: CYSTITIS
     Dosage: 10 MG PER DAY
     Route: 048
  2. LORAZEPAM [Suspect]
     Dosage: 1 MG PER DAY
     Route: 048
  3. FURADANTIN [Suspect]
     Dosage: 2 UNIT PER DAY
     Route: 048
  4. DEROXAT [Suspect]
     Dosage: 10 MG PER DAY
     Route: 048

REACTIONS (3)
  - Lung disorder [Unknown]
  - Hypoxia [Unknown]
  - Bronchoalveolar lavage abnormal [Unknown]
